FAERS Safety Report 19359153 (Version 1)
Quarter: 2021Q2

REPORT INFORMATION
  Report Type: Spontaneous
  Country: US (occurrence: US)
  Receive Date: 20210601
  Receipt Date: 20210601
  Transmission Date: 20210717
  Serious: Yes (Other)
  Sender: FDA-Public Use
  Company Number: US-GLAXOSMITHKLINE-US2021GSK113017

PATIENT
  Sex: Male

DRUGS (2)
  1. RANITIDINE. [Suspect]
     Active Substance: RANITIDINE
     Indication: PRURITUS
     Dosage: UNK, QD
     Route: 065
     Dates: start: 201201, end: 202005
  2. RANITIDINE. [Suspect]
     Active Substance: RANITIDINE
     Indication: PRURITUS
     Dosage: UNK, QD
     Route: 065
     Dates: start: 201201, end: 202005

REACTIONS (1)
  - Bladder cancer [Unknown]
